FAERS Safety Report 7888421-6 (Version None)
Quarter: 2011Q4

REPORT INFORMATION
  Report Type: 
  Country: None (occurrence: None)
  Receive Date: 20111103
  Receipt Date: 20111028
  Transmission Date: 20120403
  Serious: Yes (Other)
  Sender: FDA-Public Use
  Company Number: US-PFIZER INC-2011234317

PATIENT
  Sex: Male
  Weight: 133.79 kg

DRUGS (5)
  1. GLUCOSAMINE [Concomitant]
     Indication: ARTHROPATHY
     Dosage: 60 MG, DAILY
  2. FISH OIL [Concomitant]
     Dosage: 60 MG, DAILY
  3. ACETYLSALICYLIC ACID [Concomitant]
     Indication: HYPERTENSION
     Dosage: 81 MG, DAILY
  4. AMLODIPINE [Concomitant]
     Indication: HYPERTENSION
     Dosage: 5 MG, DAILY
     Route: 048
  5. CELEBREX [Suspect]
     Indication: BURSITIS
     Dosage: UNK
     Route: 048

REACTIONS (1)
  - RESTLESS LEGS SYNDROME [None]
